FAERS Safety Report 7262254-6 (Version None)
Quarter: 2011Q1

REPORT INFORMATION
  Report Type: 
  Country: None (occurrence: None)
  Receive Date: 20110130
  Receipt Date: 20101124
  Transmission Date: 20110831
  Serious: No
  Sender: FDA-Public Use
  Company Number: US-ABBOTT-10P-163-0687706-00

PATIENT
  Age: 40 Year
  Sex: Male

DRUGS (6)
  1. HUMIRA [Suspect]
     Indication: RHEUMATOID ARTHRITIS
     Dates: start: 20101025
  2. VALIUM [Concomitant]
     Indication: MUSCLE SPASMS
     Dosage: 1-3 DAILY
  3. ZYPREXA [Concomitant]
     Indication: BIPOLAR DISORDER
  4. LYRICA [Concomitant]
     Indication: BIPOLAR DISORDER
  5. PERCOCET [Concomitant]
     Indication: PAIN
     Dosage: 10/325MG
  6. HUMIRA [Suspect]
     Indication: PSORIATIC ARTHROPATHY

REACTIONS (16)
  - SINUS CONGESTION [None]
  - HEADACHE [None]
  - SWELLING FACE [None]
  - PRURITUS GENERALISED [None]
  - PAIN [None]
  - PSORIASIS [None]
  - DYSPNOEA [None]
  - FLUSHING [None]
  - COUGH [None]
  - HYPOAESTHESIA [None]
  - PARAESTHESIA [None]
  - FEELING ABNORMAL [None]
  - FATIGUE [None]
  - WEIGHT DECREASED [None]
  - AURICULAR SWELLING [None]
  - ARTHRALGIA [None]
